FAERS Safety Report 14890122 (Version 1)
Quarter: 2018Q2

REPORT INFORMATION
  Report Type: Spontaneous
  Country: US (occurrence: US)
  Receive Date: 20180426
  Receipt Date: 20180426
  Transmission Date: 20180711
  Serious: Yes (Hospitalization)
  Sender: FDA-Public Use
  Company Number: None

PATIENT
  Age: 61 Year
  Sex: Male
  Weight: 128.9 kg

DRUGS (14)
  1. MVI [Concomitant]
     Active Substance: VITAMINS
  2. SINGULAIR [Concomitant]
     Active Substance: MONTELUKAST SODIUM
  3. BACTRIM DS 1TAB DAILY [Concomitant]
  4. NORVASC [Concomitant]
     Active Substance: AMLODIPINE BESYLATE
  5. GLUCOSAMINE/CHONDROITIN [Concomitant]
  6. ENOXAPARIN [Suspect]
     Active Substance: ENOXAPARIN
     Indication: ANTIPHOSPHOLIPID SYNDROME
     Route: 058
  7. PROTONIX 40 MG DAILY [Concomitant]
  8. ALBUTEROL Q 4 HOURS PRN [Concomitant]
  9. CORTEF [Concomitant]
     Active Substance: HYDROCORTISONE
  10. PREDNISONE 30 MG DAILY [Concomitant]
  11. SYMBICORT [Concomitant]
     Active Substance: BUDESONIDE\FORMOTEROL FUMARATE DIHYDRATE
  12. ITRACONAZOLE 200 MG BID [Concomitant]
  13. FLONASE [Concomitant]
     Active Substance: FLUTICASONE PROPIONATE
  14. FLOMAX [Concomitant]
     Active Substance: TAMSULOSIN HYDROCHLORIDE

REACTIONS (3)
  - Abdominal wall haematoma [None]
  - Haemoglobin decreased [None]
  - Dyspnoea [None]

NARRATIVE: CASE EVENT DATE: 20180422
